FAERS Safety Report 24630650 (Version 2)
Quarter: 2024Q4

REPORT INFORMATION
  Report Type: Spontaneous
  Country: FR (occurrence: FR)
  Receive Date: 20241118
  Receipt Date: 20241203
  Transmission Date: 20250115
  Serious: No
  Sender: PFIZER
  Company Number: FR-PFIZER INC-PV202400146984

PATIENT
  Age: 8 Year
  Sex: Female

DRUGS (2)
  1. NGENLA [Suspect]
     Active Substance: SOMATROGON-GHLA
     Dosage: UNK
     Dates: start: 20241102
  2. NGENLA [Suspect]
     Active Substance: SOMATROGON-GHLA
     Dosage: 60 MG
     Route: 058
     Dates: start: 20241122

REACTIONS (3)
  - Crying [Recovered/Resolved]
  - Injection site pain [Recovered/Resolved]
  - Fear of injection [Recovered/Resolved]

NARRATIVE: CASE EVENT DATE: 20241102
